FAERS Safety Report 7595945-8 (Version None)
Quarter: 2011Q3

REPORT INFORMATION
  Report Type: 
  Country: None (occurrence: None)
  Receive Date: 20110707
  Receipt Date: 20110622
  Transmission Date: 20111222
  Serious: Yes (Other)
  Sender: FDA-Public Use
  Company Number: PHHY2011BR55234

PATIENT
  Age: 87 Year
  Sex: Male
  Weight: 64 kg

DRUGS (7)
  1. MEMANTINE HYDROCHLORIDE [Concomitant]
     Dosage: 5 MG, BID
  2. OSCAL 500-D [Concomitant]
     Dosage: 1 DF, QD
  3. CENTRUM [Concomitant]
     Dosage: 1 DF, QD
  4. EXELON [Suspect]
     Dosage: 18MG/10CM2,1 PATCH DAILY
     Route: 062
     Dates: start: 20101101
  5. SEROQUEL [Concomitant]
     Dosage: 1 DF, QD
  6. EXELON [Suspect]
     Dosage: 27MG/15CM2,1 PATCH DAILY
  7. CYMBALTA [Concomitant]
     Dosage: 60 MG, QD

REACTIONS (5)
  - BIPOLAR DISORDER [None]
  - CONFUSIONAL STATE [None]
  - APPLICATION SITE ERYTHEMA [None]
  - APPLICATION SITE HYPERSENSITIVITY [None]
  - APPLICATION SITE IRRITATION [None]
